FAERS Safety Report 5142456-5 (Version None)
Quarter: 2006Q4

REPORT INFORMATION
  Report Type: 
  Country: None (occurrence: None)
  Receive Date: 20061030
  Receipt Date: 20061030
  Transmission Date: 20070319
  Serious: Yes (Hospitalization)
  Sender: FDA-Public Use
  Company Number: None

PATIENT
  Age: 72 Year
  Sex: Female

DRUGS (5)
  1. CETUXIMAB (CETUXIMAB) [Suspect]
     Indication: COLORECTAL CANCER METASTATIC
     Dates: start: 20060920, end: 20060920
  2. IRINOTECAN HCL [Suspect]
     Indication: COLORECTAL CANCER METASTATIC
  3. OXALIPLATIN [Suspect]
     Indication: COLORECTAL CANCER METASTATIC
  4. FLUOROURACIL [Suspect]
     Indication: COLORECTAL CANCER METASTATIC
  5. FOLINIC ACID (FOLINIC ACID) [Suspect]
     Indication: COLORECTAL CANCER METASTATIC

REACTIONS (8)
  - BACK PAIN [None]
  - DERMATITIS ALLERGIC [None]
  - FACIAL BONES FRACTURE [None]
  - FALL [None]
  - INFUSION RELATED REACTION [None]
  - LOSS OF CONSCIOUSNESS [None]
  - ORTHOSTATIC HYPOTENSION [None]
  - PAIN [None]
